FAERS Safety Report 10223863 (Version 1)
Quarter: 2014Q2

REPORT INFORMATION
  Report Type: Spontaneous
  Country: US (occurrence: US)
  Receive Date: 20140609
  Receipt Date: 20140609
  Transmission Date: 20141212
  Serious: Yes (Death)
  Sender: FDA-Public Use
  Company Number: US-JNJFOC-20140509756

PATIENT
  Age: 90 Year
  Sex: Male

DRUGS (2)
  1. IMODIUM A-D LIQUID [Suspect]
     Route: 048
  2. IMODIUM A-D LIQUID [Suspect]
     Indication: DIARRHOEA
     Route: 048
     Dates: start: 20140514

REACTIONS (2)
  - Cardiac disorder [Fatal]
  - Drug ineffective [Unknown]
